FAERS Safety Report 9539639 (Version 1)
Quarter: 2013Q2

REPORT INFORMATION
  Report Type: Spontaneous
  Country: US (occurrence: None)
  Receive Date: 20130515
  Receipt Date: 20130515
  Transmission Date: 20140414
  Serious: Yes (Hospitalization, Other)
  Sender: FDA-Public Use
  Company Number: 2013-001073

PATIENT
  Age: 17 Year
  Sex: Female

DRUGS (1)
  1. LO LOESTRIN FE (NORETHINDRONE ACETATE, ETHINYLESTRADIOL, FERROUS FUMARATE) TABLET, 1000/10UG [Suspect]
     Indication: CONTRACEPTION
     Route: 048
     Dates: start: 201208, end: 2013

REACTIONS (1)
  - Cerebrovascular accident [None]
